FAERS Safety Report 6143918-4 (Version None)
Quarter: 2009Q2

REPORT INFORMATION
  Report Type: 
  Country: None (occurrence: None)
  Receive Date: 20090406
  Receipt Date: 20090325
  Transmission Date: 20091009
  Serious: Yes (Other)
  Sender: FDA-Public Use
  Company Number: DE-PFIZER INC-2009188148

PATIENT

DRUGS (2)
  1. AROMASIN [Suspect]
     Dosage: UNK
     Dates: start: 20080101
  2. INSULIN [Concomitant]
     Indication: DIABETES MELLITUS
     Dosage: UP TO 200 IU PER DAY
     Route: 058

REACTIONS (3)
  - DIABETES MELLITUS [None]
  - HEPATIC NEOPLASM [None]
  - MYALGIA [None]
